FAERS Safety Report 11654631 (Version 2)
Quarter: 2015Q4

REPORT INFORMATION
  Report Type: Spontaneous
  Country: US (occurrence: US)
  Receive Date: 20151023
  Receipt Date: 20151029
  Transmission Date: 20160304
  Serious: No
  Sender: FDA-Public Use
  Company Number: US-PFIZER INC-2015340198

PATIENT
  Age: 22 Month
  Sex: Male

DRUGS (2)
  1. RAPAMUNE [Suspect]
     Active Substance: SIROLIMUS
     Dosage: 0.44 ML, 2X/DAY
     Dates: start: 20150901
  2. RAPAMUNE [Suspect]
     Active Substance: SIROLIMUS
     Dosage: 0.7 ML, 2X/DAY
     Dates: end: 20151006

REACTIONS (6)
  - Abdominal pain upper [Unknown]
  - Product quality issue [Unknown]
  - Lip swelling [Not Recovered/Not Resolved]
  - Product use issue [Unknown]
  - Crying [Unknown]
  - Mood altered [Unknown]

NARRATIVE: CASE EVENT DATE: 201510
